FAERS Safety Report 12869716 (Version 2)
Quarter: 2017Q1

REPORT INFORMATION
  Report Type: Report from Study
  Country: US (occurrence: US)
  Receive Date: 20161020
  Receipt Date: 20170124
  Transmission Date: 20170428
  Serious: No
  Sender: FDA-Public Use
  Company Number: US-AMGEN-USASL2016114881

PATIENT
  Age: 75 Year
  Sex: Male

DRUGS (1)
  1. REPATHA [Suspect]
     Active Substance: EVOLOCUMAB
     Indication: BLOOD CHOLESTEROL ABNORMAL
     Dosage: 140 MG, Q2WK
     Route: 065

REACTIONS (13)
  - Restlessness [Unknown]
  - Nervousness [Unknown]
  - Hyperphagia [Unknown]
  - Dysarthria [Unknown]
  - Fatigue [Unknown]
  - Oral pain [Unknown]
  - Confusional state [Unknown]
  - Oral discomfort [Unknown]
  - Nausea [Unknown]
  - Dry mouth [Unknown]
  - Fat tissue increased [Unknown]
  - Headache [Unknown]
  - Insomnia [Unknown]

NARRATIVE: CASE EVENT DATE: 201608
